FAERS Safety Report 6766751-9 (Version None)
Quarter: 2010Q2

REPORT INFORMATION
  Report Type: 
  Country: None (occurrence: None)
  Receive Date: 20100609
  Receipt Date: 20100527
  Transmission Date: 20101027
  Serious: Yes (Hospitalization)
  Sender: FDA-Public Use
  Company Number: 167-20484-09071336

PATIENT
  Age: 24 Year
  Sex: Female
  Weight: 62 kg

DRUGS (10)
  1. INNOHEP [Suspect]
     Indication: EMBOLISM VENOUS
     Dosage: SEE IMAGE
     Route: 058
     Dates: start: 20051205, end: 20051227
  2. INNOHEP [Suspect]
     Indication: EMBOLISM VENOUS
     Dosage: SEE IMAGE
     Route: 058
     Dates: start: 20051229, end: 20051229
  3. INNOHEP [Suspect]
     Indication: EMBOLISM VENOUS
     Dosage: SEE IMAGE
     Route: 058
     Dates: start: 20051230, end: 20060210
  4. PROSTIN (DINOPROSTONE) (TABLETS) [Concomitant]
  5. AMOXICILLIN [Concomitant]
  6. GENTAMICIN [Concomitant]
  7. DIAMORPHINE (DIAMORPHINE) [Concomitant]
  8. PROCHLORPERAZINE MALEATE [Concomitant]
  9. ONDANSETRON [Concomitant]
  10. SYNTOCINON [Concomitant]

REACTIONS (3)
  - DRUG EXPOSURE DURING PREGNANCY [None]
  - POSTPARTUM HAEMORRHAGE [None]
  - RETAINED PRODUCTS OF CONCEPTION [None]
